FAERS Safety Report 16687562 (Version 1)
Quarter: 2019Q4

REPORT INFORMATION
  Report Type: Spontaneous
  Country: US (occurrence: US)
  Receive Date: 20190808
  Receipt Date: 20190808
  Transmission Date: 20200122
  Serious: No
  Sender: FDA-Public Use
  Company Number: None

PATIENT
  Age: 68 Year
  Sex: Female

DRUGS (1)
  1. EYLEA [Suspect]
     Active Substance: AFLIBERCEPT
     Indication: RETINAL VEIN OCCLUSION
     Dosage: ?          OTHER ROUTE: INTRAVITREAL INJECTION?           THERAPY ONGOING: Y?
     Dates: start: 20170106, end: 20190731

REACTIONS (3)
  - Visual impairment [None]
  - Endophthalmitis [None]
  - Pain [None]

NARRATIVE: CASE EVENT DATE: 20190731
